FAERS Safety Report 4706470-3 (Version None)
Quarter: 2005Q3

REPORT INFORMATION
  Report Type: 
  Country: None (occurrence: None)
  Receive Date: 20050705
  Receipt Date: 20050427
  Transmission Date: 20060218
  Serious: Yes (Other)
  Sender: FDA-Public Use
  Company Number: GB-GLAXOSMITHKLINE-B0379385A

PATIENT
  Sex: Male

DRUGS (2)
  1. ZINNAT [Suspect]
     Dates: start: 20050314, end: 20050318
  2. FELDENE [Concomitant]
     Indication: ARTHRITIS

REACTIONS (7)
  - ASTHENIA [None]
  - CHROMATURIA [None]
  - FAECES PALE [None]
  - FATIGUE [None]
  - JAUNDICE [None]
  - PRURITUS [None]
  - SKIN LESION [None]
